FAERS Safety Report 12491802 (Version 1)
Quarter: 2016Q2

REPORT INFORMATION
  Report Type: Spontaneous
  Country: BR (occurrence: BR)
  Receive Date: 20160623
  Receipt Date: 20160623
  Transmission Date: 20160815
  Serious: Yes (Hospitalization, Other)
  Sender: FDA-Public Use
  Company Number: BR-AMGEN-BRASP2012028619

PATIENT
  Age: 44 Year
  Sex: Female
  Weight: 74 kg

DRUGS (9)
  1. PIROXICAM. [Concomitant]
     Active Substance: PIROXICAM
     Dosage: 1 ^CP^ DAILY (STRENGTH 20 MG)
  2. METICORTEN [Concomitant]
     Active Substance: PREDNISONE
     Dosage: UNK
  3. SULFASALAZINE. [Concomitant]
     Active Substance: SULFASALAZINE
     Dosage: 3 ^CP^ EVERY 12 HOURS (STRENGTH 500 MG)
  4. PIROXICAM. [Concomitant]
     Active Substance: PIROXICAM
     Dosage: UNK
  5. FOLIC ACID. [Concomitant]
     Active Substance: FOLIC ACID
     Dosage: 1 ^CP^ IN THE MORNING
  6. ENBREL [Suspect]
     Active Substance: ETANERCEPT
     Indication: RHEUMATOID ARTHRITIS
     Dosage: 25 MG, 2X/WEEK
     Route: 058
     Dates: start: 20060620, end: 201104
  7. FERROUS SULFATE. [Concomitant]
     Active Substance: FERROUS SULFATE
     Dosage: 1 ^CP^ IN THE MORNING
  8. METHOTREXATE [Concomitant]
     Active Substance: METHOTREXATE
     Dosage: 6 ^CP^ AT SATURDAYS (STRENGTH 2.5 MG)
  9. PREDNISONE. [Concomitant]
     Active Substance: PREDNISONE
     Dosage: 1 ^CP^ IN THE MORNING AND AT NIGHT (STRENGTH 5 MG)

REACTIONS (9)
  - Arthralgia [Unknown]
  - Arrhythmia [Unknown]
  - Arthropathy [Unknown]
  - Dyspnoea [Unknown]
  - Pruritus [Unknown]
  - Injection site erythema [Unknown]
  - Anaemia [Unknown]
  - Thrombosis [Unknown]
  - Injection site swelling [Unknown]

NARRATIVE: CASE EVENT DATE: 2008
